FAERS Safety Report 18868733 (Version 1)
Quarter: 2021Q1

REPORT INFORMATION
  Report Type: Spontaneous
  Country: US (occurrence: US)
  Receive Date: 20210209
  Receipt Date: 20210209
  Transmission Date: 20210420
  Serious: No
  Sender: FDA-Public Use
  Company Number: US-MYLANLABS-2021M1006433

PATIENT
  Sex: Female

DRUGS (3)
  1. BENZTROPINE                        /00012901/ [Concomitant]
     Active Substance: BENZTROPINE
     Dosage: UNK
  2. TRIFLUOPERAZINE HYDROCHLORIDE TABLETS, USP [Suspect]
     Active Substance: TRIFLUOPERAZINE HYDROCHLORIDE
     Indication: SCHIZOPHRENIA
     Dosage: UNK
     Route: 048
     Dates: start: 20210128
  3. DIVALPROEX [Concomitant]
     Active Substance: DIVALPROEX SODIUM
     Dosage: UNK

REACTIONS (3)
  - Nasal congestion [Not Recovered/Not Resolved]
  - Palpitations [Not Recovered/Not Resolved]
  - Intentional product misuse [Not Recovered/Not Resolved]
